FAERS Safety Report 20564243 (Version 2)
Quarter: 2022Q2

REPORT INFORMATION
  Report Type: Spontaneous
  Country: US (occurrence: US)
  Receive Date: 20220308
  Receipt Date: 20220407
  Transmission Date: 20220721
  Serious: No
  Sender: FDA-Public Use
  Company Number: US-GSKCCFUS-Case-01313367_AE-76447

PATIENT
  Sex: Female

DRUGS (1)
  1. FLOVENT HFA [Suspect]
     Active Substance: FLUTICASONE PROPIONATE
     Indication: Product used for unknown indication
     Dosage: 44 UG, BID
     Route: 055
     Dates: start: 202201

REACTIONS (7)
  - Chest pain [Unknown]
  - Nasopharyngitis [Unknown]
  - Underdose [Unknown]
  - Wrong technique in device usage process [Unknown]
  - Product storage error [Unknown]
  - Product dose omission issue [Unknown]
  - Product complaint [Unknown]
